FAERS Safety Report 19122651 (Version 2)
Quarter: 2021Q2

REPORT INFORMATION
  Report Type: Report from Study
  Country: JP (occurrence: JP)
  Receive Date: 20210412
  Receipt Date: 20210513
  Transmission Date: 20210717
  Serious: Yes (Hospitalization)
  Sender: FDA-Public Use
  Company Number: JP-CELGENEUS-JPN-20201004221

PATIENT
  Age: 54 Year
  Sex: Female
  Weight: 72 kg

DRUGS (7)
  1. MESALAZINE [Concomitant]
     Active Substance: MESALAMINE
     Indication: COLITIS ULCERATIVE
     Dosage: 4800 MG X 1 X 1 DAYS
     Route: 048
     Dates: start: 20181117
  2. BIASTINE [Concomitant]
     Indication: SEASONAL ALLERGY
     Dosage: MG X 1 X 1 DAYS
     Route: 048
     Dates: start: 20190320
  3. ATORVASTATIN CALCIUM HYDRATE [Concomitant]
     Active Substance: ATORVASTATIN CALCIUM
     Indication: HYPERCHOLESTEROLAEMIA
     Dosage: 5 MG X 1 X 1 DAYS
     Route: 048
     Dates: start: 20190109
  4. FLUTIASONE PROPIONATE FORMOTEROL FUMARATE HYDRATE [Concomitant]
     Indication: ASTHMA
     Dosage: 4 INHALATION X 2 X 1 DAYS
     Route: 055
     Dates: start: 20190109
  5. MONTELUKAST SODIUM. [Concomitant]
     Active Substance: MONTELUKAST SODIUM
     Indication: ASTHMA
     Dosage: 10 MG X 1 X 1 DAYS
     Route: 048
     Dates: start: 20190109
  6. OZANIMOD. [Suspect]
     Active Substance: OZANIMOD
     Indication: COLITIS
     Dosage: 1 CAPSULE X 1 X 1 DAYS
     Route: 048
     Dates: start: 20190801, end: 20190804
  7. BIO?THREE [Concomitant]
     Active Substance: HERBALS
     Indication: COLITIS ULCERATIVE
     Dosage: 2 TABLET X 2 X 1 DAYS
     Route: 048
     Dates: start: 20181017

REACTIONS (1)
  - Hemiplegia [Not Recovered/Not Resolved]

NARRATIVE: CASE EVENT DATE: 20201011
